FAERS Safety Report 8525736-2 (Version None)
Quarter: 2012Q3

REPORT INFORMATION
  Report Type: 
  Country: None (occurrence: None)
  Receive Date: 20120720
  Receipt Date: 20120711
  Transmission Date: 20120928
  Serious: Yes (Hospitalization, Other)
  Sender: FDA-Public Use
  Company Number: US-009507513-1201USA01163

PATIENT

DRUGS (6)
  1. FOSAMAX [Suspect]
     Dosage: 70 MG, QW
     Route: 048
     Dates: start: 20000801
  2. FOSAMAX [Suspect]
     Indication: OSTEOPOROSIS
     Dosage: 10 MG, UNK
     Route: 048
     Dates: start: 20000801, end: 20071001
  3. DIOVAN [Concomitant]
     Indication: HYPERTENSION
     Dosage: 80-160
  4. NORVASC [Concomitant]
     Indication: HYPERTENSION
     Dosage: 5 MG, QD
  5. FORTEO [Concomitant]
     Indication: OSTEOPOROSIS
  6. FOSAMAX PLUS D [Suspect]
     Indication: OSTEOPOROSIS
     Dosage: 70 MG, QW
     Route: 048
     Dates: start: 20071004

REACTIONS (41)
  - COUGH [None]
  - BACK PAIN [None]
  - SUPRAVENTRICULAR EXTRASYSTOLES [None]
  - BLADDER DISORDER [None]
  - FRACTURE [None]
  - CHRONIC OBSTRUCTIVE PULMONARY DISEASE [None]
  - CONSTIPATION [None]
  - URETHRAL DISORDER [None]
  - BRONCHITIS [None]
  - ARTHROPATHY [None]
  - DRUG INEFFECTIVE [None]
  - HAEMATURIA [None]
  - HAEMORRHOIDS [None]
  - PHARYNGOESOPHAGEAL DIVERTICULUM [None]
  - ECZEMA [None]
  - ANKLE FRACTURE [None]
  - OVARIAN DISORDER [None]
  - ANAEMIA POSTOPERATIVE [None]
  - SCAPULA FRACTURE [None]
  - CARDIAC MURMUR [None]
  - RENAL CYST [None]
  - FEMUR FRACTURE [None]
  - HYPERCHOLESTEROLAEMIA [None]
  - ATRIAL FIBRILLATION [None]
  - LIPOHYPERTROPHY [None]
  - OSTEOARTHRITIS [None]
  - INTERVERTEBRAL DISC DEGENERATION [None]
  - TIBIA FRACTURE [None]
  - LIGAMENT SPRAIN [None]
  - MITRAL VALVE PROLAPSE [None]
  - LOWER LIMB FRACTURE [None]
  - BLOOD DISORDER [None]
  - ASTHMA [None]
  - STRESS URINARY INCONTINENCE [None]
  - OSTEOPENIA [None]
  - NEOPLASM [None]
  - MITRAL VALVE INCOMPETENCE [None]
  - BUNDLE BRANCH BLOCK LEFT [None]
  - URETHRAL STENOSIS [None]
  - SYNCOPE [None]
  - FALL [None]
